FAERS Safety Report 6006002-6 (Version None)
Quarter: 2008Q4

REPORT INFORMATION
  Report Type: 
  Country: None (occurrence: None)
  Receive Date: 20081217
  Receipt Date: 20081210
  Transmission Date: 20090506
  Serious: Yes (Hospitalization)
  Sender: FDA-Public Use
  Company Number: PHHO2008DE14700

PATIENT
  Sex: Male
  Weight: 52 kg

DRUGS (6)
  1. STI571/CGP57148B T35717+CAPS [Suspect]
     Indication: ACUTE LYMPHOCYTIC LEUKAEMIA
     Dosage: 500 MG, QD
     Route: 048
     Dates: start: 20081203, end: 20081216
  2. NEUPOGEN [Concomitant]
     Dosage: UNK
     Dates: start: 20081204
  3. CORTIDEXASON [Concomitant]
     Dosage: UNK
     Dates: start: 20080701
  4. AMPHOTERICIN B [Concomitant]
     Dosage: UNK
     Dates: start: 20080701
  5. COLISTIN SULFATE [Concomitant]
     Dosage: UNK
     Dates: start: 20080701
  6. OMEPRAZOLE [Concomitant]
     Dosage: UNK
     Dates: start: 20080701

REACTIONS (9)
  - ABDOMINAL PAIN [None]
  - ABDOMINAL PAIN LOWER [None]
  - ABDOMINAL WALL DISORDER [None]
  - ANGIOPATHY [None]
  - APPENDICITIS [None]
  - APPENDIX DISORDER [None]
  - CAECITIS [None]
  - NEUTROPENIC COLITIS [None]
  - OEDEMA [None]
